FAERS Safety Report 4371786-X (Version None)
Quarter: 2004Q2

REPORT INFORMATION
  Report Type: 
  Country: None (occurrence: None)
  Receive Date: 20040604
  Receipt Date: 20040604
  Transmission Date: 20050107
  Serious: No
  Sender: FDA-Public Use
  Company Number: None

PATIENT
  Sex: Female

DRUGS (3)
  1. DOXORUBICIN HCL [Suspect]
     Indication: BREAST CANCER
     Dosage: 112 MG Q 3 WEEKS IV
     Route: 042
     Dates: start: 19960708, end: 19960909
  2. CYCLOPHOSPHAMIDE [Suspect]
     Indication: BREAST CANCER
     Dosage: 1122 MG QD WEEKS IV
     Route: 042
     Dates: start: 19960708, end: 19960809
  3. RADIATION [Concomitant]

REACTIONS (1)
  - BREAST CANCER STAGE III [None]
